FAERS Safety Report 9733052 (Version 2)
Quarter: 2013Q4

REPORT INFORMATION
  Report Type: Spontaneous
  Country: US (occurrence: US)
  Receive Date: 20131204
  Receipt Date: 20131204
  Transmission Date: 20140711
  Serious: No
  Sender: FDA-Public Use
  Company Number: US-GILEAD-2009-0021876

PATIENT
  Sex: Female

DRUGS (10)
  1. LETAIRIS [Suspect]
     Indication: PULMONARY ARTERIAL HYPERTENSION
     Route: 048
     Dates: start: 20090418
  2. NORVASC [Concomitant]
  3. ASPIRIN [Concomitant]
  4. XANAX XR [Concomitant]
  5. METHADONE [Concomitant]
  6. TYLENOL [Concomitant]
  7. SYNTHROID [Concomitant]
  8. BENADRYL [Concomitant]
  9. BLACK COHOSH [Concomitant]
  10. CALCIUM [Concomitant]

REACTIONS (7)
  - Asthenia [Unknown]
  - Pain in extremity [Unknown]
  - Nausea [Unknown]
  - Headache [Unknown]
  - Local swelling [Unknown]
  - Eye swelling [Unknown]
  - Oedema peripheral [Unknown]
